FAERS Safety Report 24592512 (Version 2)
Quarter: 2024Q4

REPORT INFORMATION
  Report Type: Spontaneous
  Country: DE (occurrence: DE)
  Receive Date: 20241108
  Receipt Date: 20241114
  Transmission Date: 20250115
  Serious: Yes (Other)
  Sender: IPSEN BIOPHARMACEUTICALS, INC.
  Company Number: DE-IPSEN Group, Research and Development-2024-22542

PATIENT
  Sex: Male

DRUGS (2)
  1. LANREOTIDE ACETATE [Suspect]
     Active Substance: LANREOTIDE ACETATE
     Indication: Small intestine neuroendocrine tumour
     Dosage: DEEP SUBCUTANEOUS, TREATED 3 TIMES
     Route: 058
     Dates: start: 202402
  2. LANREOTIDE ACETATE [Suspect]
     Active Substance: LANREOTIDE ACETATE
     Dosage: DEEP SUBCUTANEOUS, 3 TIMES 120 MG SOMATULINE EVERY 28 DAYS
     Route: 058

REACTIONS (1)
  - Malignant neoplasm progression [Not Recovered/Not Resolved]
